FAERS Safety Report 6061872-0 (Version None)
Quarter: 2009Q1

REPORT INFORMATION
  Report Type: 
  Country: None (occurrence: None)
  Receive Date: 20090202
  Receipt Date: 20090120
  Transmission Date: 20090719
  Serious: Yes (Other)
  Sender: FDA-Public Use
  Company Number: PHHY2009CA02448

PATIENT
  Sex: Male

DRUGS (1)
  1. DIOVAN HCT [Suspect]
     Dosage: 1 TABLET (80 MG VALSARTAN/12.5 MG HYDROCHLOROTHIAZIDE) PER DAY
     Route: 048

REACTIONS (5)
  - HEADACHE [None]
  - HYPERTENSION [None]
  - NECK PAIN [None]
  - SCIATICA [None]
  - SPINAL OSTEOARTHRITIS [None]
